FAERS Safety Report 7471364-X (Version None)
Quarter: 2011Q2

REPORT INFORMATION
  Report Type: 
  Country: None (occurrence: None)
  Receive Date: 20110510
  Receipt Date: 20110427
  Transmission Date: 20111010
  Serious: Yes (Hospitalization)
  Sender: FDA-Public Use
  Company Number: GB-BAUSCH-2011BL002882

PATIENT
  Age: 79 Year
  Sex: Male

DRUGS (5)
  1. AZATHIOPRINE [Concomitant]
     Indication: CROHN'S DISEASE
  2. MERCAPTOPURINE [Concomitant]
     Indication: CROHN'S DISEASE
  3. PREDNISOLONE [Suspect]
     Indication: CROHN'S DISEASE
     Dosage: DOSE UNIT:UNKNOWN
     Route: 065
  4. SULFASALAZINE [Suspect]
     Indication: CROHN'S DISEASE
     Dosage: DOSE UNIT:UNKNOWN
     Route: 065
  5. MESALAMINE [Suspect]
     Indication: CROHN'S DISEASE
     Dosage: DOSE UNIT:UNKNOWN
     Route: 065

REACTIONS (4)
  - NORMOCHROMIC NORMOCYTIC ANAEMIA [None]
  - INTESTINAL DIAPHRAGM DISEASE [None]
  - SMALL INTESTINAL OBSTRUCTION [None]
  - HYPOALBUMINAEMIA [None]
